FAERS Safety Report 20838523 (Version 3)
Quarter: 2022Q2

REPORT INFORMATION
  Report Type: Report from Study
  Country: BE (occurrence: BE)
  Receive Date: 20220517
  Receipt Date: 20220627
  Transmission Date: 20220720
  Serious: Yes (Other)
  Sender: FDA-Public Use
  Company Number: BE-ROCHE-3079775

PATIENT
  Age: 57 Year
  Sex: Female
  Weight: 74.5 kg

DRUGS (12)
  1. CARBOPLATIN [Suspect]
     Active Substance: CARBOPLATIN
     Indication: Ovarian cancer recurrent
     Dosage: UNK
     Route: 042
     Dates: start: 20210305, end: 20210730
  2. GEMCITABINE HYDROCHLORIDE [Suspect]
     Active Substance: GEMCITABINE HYDROCHLORIDE
     Indication: Ovarian cancer recurrent
     Dosage: 1000 MG/M2
     Route: 042
     Dates: start: 20210305, end: 20210708
  3. ATEZOLIZUMAB [Suspect]
     Active Substance: ATEZOLIZUMAB
     Indication: Ovarian cancer recurrent
     Dosage: MOST RECENT DOSE ADMINISTERED ON 24NOV2021, 26JAN2022
     Route: 041
     Dates: start: 20210305
  4. NIRAPARIB [Suspect]
     Active Substance: NIRAPARIB
     Indication: Ovarian cancer recurrent
     Dosage: MOST RECENT DOSE ADMINISTERED ON 15DEC2021, 15FEB2022
     Route: 048
     Dates: start: 20210811
  5. LIVIAL [Concomitant]
     Active Substance: TIBOLONE
     Indication: Hot flush
     Dosage: 25 MG
     Route: 048
     Dates: start: 20210915
  6. ACETAMINOPHEN [Concomitant]
     Active Substance: ACETAMINOPHEN
     Indication: Headache
     Route: 048
     Dates: start: 20211027
  7. MELOXICAM [Concomitant]
     Active Substance: MELOXICAM
     Indication: Back pain
     Dosage: 15 MG
     Route: 048
     Dates: start: 20211014
  8. MELOXICAM [Concomitant]
     Active Substance: MELOXICAM
     Indication: Arthralgia
  9. MELOXICAM [Concomitant]
     Active Substance: MELOXICAM
     Indication: Pain in extremity
  10. LITICAN [ALIZAPRIDE HYDROCHLORIDE] [Concomitant]
     Indication: Nausea
     Route: 048
     Dates: start: 20211125
  11. PANTOPRAZOLE SODIUM [Concomitant]
     Active Substance: PANTOPRAZOLE SODIUM
     Dosage: 40 MG
     Route: 048
     Dates: start: 20211125
  12. EDOXABAN TOSYLATE [Concomitant]
     Active Substance: EDOXABAN TOSYLATE
     Indication: Deep vein thrombosis
     Dosage: 60 MG
     Route: 048
     Dates: start: 20210923

REACTIONS (2)
  - Hypothyroidism [Not Recovered/Not Resolved]
  - Condition aggravated [Not Recovered/Not Resolved]

NARRATIVE: CASE EVENT DATE: 20211215
